FAERS Safety Report 4309236-1 (Version None)
Quarter: 2004Q1

REPORT INFORMATION
  Report Type: 
  Country: None (occurrence: None)
  Receive Date: 20040301
  Receipt Date: 20040224
  Transmission Date: 20041129
  Serious: Yes (Life-Threatening, Hospitalization, Other)
  Sender: FDA-Public Use
  Company Number: FRWYE601925FEB04

PATIENT
  Age: 43 Year
  Sex: Female

DRUGS (6)
  1. OXAZEPAM [Suspect]
     Dosage: ORAL
     Route: 048
     Dates: start: 20031122, end: 20031122
  2. EQUANIL [Suspect]
     Dosage: ORAL
     Route: 048
     Dates: start: 20031122, end: 20031122
  3. NEUROSIS (LLT:  NEUROSIS) [Concomitant]
  4. ALCOHOLISM (LLT:  ALCOHOLISM) [Concomitant]
  5. TOBACCO ABUSE (LLT:  TOBACCO ABUE) [Concomitant]
  6. SUICIDE ATTEMPT (LLT:  SUICIDE ATTEMPT) [Concomitant]

REACTIONS (10)
  - CIRCULATORY COLLAPSE [None]
  - COMA [None]
  - CULTURE POSITIVE [None]
  - HYPOTONIA [None]
  - HYPOVENTILATION [None]
  - INTENTIONAL OVERDOSE [None]
  - PNEUMONIA ASPIRATION [None]
  - STAPHYLOCOCCAL INFECTION [None]
  - TACHYCARDIA [None]
  - VOMITING [None]
